FAERS Safety Report 15143277 (Version 2)
Quarter: 2018Q3

REPORT INFORMATION
  Report Type: Spontaneous
  Country: US (occurrence: US)
  Receive Date: 20180713
  Receipt Date: 20180717
  Transmission Date: 20181010
  Serious: No
  Sender: FDA-Public Use
  Company Number: US-PFIZER INC-2018281827

PATIENT
  Sex: Male
  Weight: 76.19 kg

DRUGS (3)
  1. MEDROL [Suspect]
     Active Substance: METHYLPREDNISOLONE
     Indication: PULMONARY EOSINOPHILIA
     Dosage: 8 MG, DAILY
     Route: 048
  2. MEDROL [Suspect]
     Active Substance: METHYLPREDNISOLONE
     Indication: ASTHMA
     Dosage: 48 MG, DAILY
  3. METHYLPREDNISOLONE. [Suspect]
     Active Substance: METHYLPREDNISOLONE
     Dosage: UNK

REACTIONS (6)
  - Dental caries [Not Recovered/Not Resolved]
  - Toothache [Unknown]
  - Tooth loss [Not Recovered/Not Resolved]
  - Product use in unapproved indication [Unknown]
  - Condition aggravated [Unknown]
  - Tooth fracture [Unknown]

NARRATIVE: CASE EVENT DATE: 2017
